FAERS Safety Report 22333073 (Version 1)
Quarter: 2023Q2

REPORT INFORMATION
  Report Type: Report from Study
  Country: US (occurrence: US)
  Receive Date: 20230517
  Receipt Date: 20230517
  Transmission Date: 20230722
  Serious: Yes (Hospitalization, Other)
  Sender: FDA-Public Use
  Company Number: US-002147023-NVSC2023US108963

PATIENT
  Sex: Male

DRUGS (1)
  1. ENTRESTO [Suspect]
     Active Substance: SACUBITRIL\VALSARTAN
     Indication: Product used for unknown indication
     Dosage: 1 DOSAGE FORM, BID
     Route: 065
     Dates: start: 2021

REACTIONS (9)
  - Renal disorder [Unknown]
  - Atrial fibrillation [Recovered/Resolved]
  - Gastrointestinal motility disorder [Unknown]
  - Multiple sclerosis [Unknown]
  - Atrial fibrillation [Unknown]
  - COVID-19 [Recovering/Resolving]
  - Memory impairment [Unknown]
  - Blood pressure diastolic decreased [Unknown]
  - Weight increased [Unknown]
